FAERS Safety Report 24188453 (Version 1)
Quarter: 2024Q3

REPORT INFORMATION
  Report Type: Spontaneous
  Country: US (occurrence: US)
  Receive Date: 20240808
  Receipt Date: 20240808
  Transmission Date: 20241016
  Serious: No
  Sender: OTSUKA
  Company Number: US-OTSUKA-2023_026672

PATIENT
  Sex: Female

DRUGS (2)
  1. ABILIFY MAINTENA [Suspect]
     Active Substance: ARIPIPRAZOLE
     Indication: Product used for unknown indication
     Dosage: 400 MG, EVERY 4 WEEKS
     Route: 065
  2. ABILIFY MAINTENA [Suspect]
     Active Substance: ARIPIPRAZOLE
     Dosage: 400 MG, EVERY 3 WEEKS
     Route: 065

REACTIONS (10)
  - Immune system disorder [Unknown]
  - Impaired quality of life [Unknown]
  - Sinus congestion [Unknown]
  - Feeling abnormal [Unknown]
  - Gout [Unknown]
  - Coordination abnormal [Unknown]
  - Lethargy [Unknown]
  - Arthralgia [Unknown]
  - Off label use [Unknown]
  - Drug ineffective [Unknown]
